FAERS Safety Report 4282177-4 (Version None)
Quarter: 2004Q1

REPORT INFORMATION
  Report Type: 
  Country: None (occurrence: None)
  Receive Date: 20040130
  Receipt Date: 20040123
  Transmission Date: 20041129
  Serious: Yes (Hospitalization)
  Sender: FDA-Public Use
  Company Number: US-BRISTOL-MYERS SQUIBB COMPANY-12485066

PATIENT
  Age: 35 Year
  Sex: Male

DRUGS (12)
  1. EFAVIRENZ [Suspect]
     Indication: HIV INFECTION
     Route: 048
     Dates: start: 20031219
  2. COMBIVIR [Suspect]
     Indication: HIV INFECTION
     Dosage: 150/300 MG (LAMIVUDINE/ZIDOVUDINE)
     Route: 048
     Dates: start: 20031219
  3. BACTRIM DS [Concomitant]
  4. AZITHROMYCIN [Concomitant]
  5. VITAMIN B6 [Concomitant]
  6. ETHAMBUTOL HCL [Concomitant]
  7. PYRAZINAMIDE [Concomitant]
  8. ISONIAZID [Concomitant]
  9. RIFABUTIN [Concomitant]
  10. IRON SULFATETHIAMIN COMPOUND TAB [Concomitant]
  11. TYLENOL W/ CODEINE NO. 3 [Concomitant]
  12. FLUCONAZOLE [Concomitant]

REACTIONS (3)
  - ABDOMINAL MASS [None]
  - INTESTINAL OBSTRUCTION [None]
  - TUBERCULOSIS GASTROINTESTINAL [None]
